FAERS Safety Report 8072472-5 (Version None)
Quarter: 2012Q1

REPORT INFORMATION
  Report Type: 
  Country: None (occurrence: None)
  Receive Date: 20120126
  Receipt Date: 20120118
  Transmission Date: 20120608
  Serious: Yes (Hospitalization, Other)
  Sender: FDA-Public Use
  Company Number: FR-PFIZER INC-2012019667

PATIENT
  Age: 80 Year
  Sex: Female

DRUGS (3)
  1. PHENYTOIN SODIUM [Suspect]
     Dosage: UNK
     Dates: start: 20110831, end: 20110927
  2. CORDARONE [Suspect]
     Indication: PRODUCT USED FOR UNKNOWN INDICATION
     Dosage: UNK
     Route: 048
     Dates: start: 20110730, end: 20110927
  3. KEPPRA [Suspect]
     Dosage: UNK
     Route: 048
     Dates: end: 20110927

REACTIONS (5)
  - HYPERSENSITIVITY [None]
  - CHOLESTASIS [None]
  - EOSINOPHILIA [None]
  - RASH [None]
  - PRURITUS [None]
